FAERS Safety Report 16593086 (Version 1)
Quarter: 2019Q3

REPORT INFORMATION
  Report Type: Spontaneous
  Country: US (occurrence: US)
  Receive Date: 20190718
  Receipt Date: 20190718
  Transmission Date: 20191004
  Serious: No
  Sender: FDA-Public Use
  Company Number: US-TEVA-2019-US-1078135

PATIENT
  Age: 71 Year
  Sex: Male

DRUGS (2)
  1. MUPIROCIN. [Suspect]
     Active Substance: MUPIROCIN
     Indication: IMPETIGO
  2. MUPIROCIN. [Suspect]
     Active Substance: MUPIROCIN
     Indication: HERPES ZOSTER

REACTIONS (3)
  - Skin induration [Unknown]
  - Musculoskeletal pain [Unknown]
  - Skin atrophy [Unknown]
